FAERS Safety Report 6530728-9 (Version None)
Quarter: 2010Q1

REPORT INFORMATION
  Report Type: 
  Country: None (occurrence: None)
  Receive Date: 20100108
  Receipt Date: 20081218
  Transmission Date: 20100710
  Serious: No
  Sender: FDA-Public Use
  Company Number: A0761081A

PATIENT
  Age: 66 Year
  Sex: Female

DRUGS (4)
  1. LOVAZA [Suspect]
     Indication: BLOOD CHOLESTEROL INCREASED
     Dosage: 4CAP PER DAY
     Route: 048
     Dates: start: 20081215
  2. SYNTHROID [Concomitant]
  3. COREG [Concomitant]
  4. POTASSIUM [Concomitant]

REACTIONS (1)
  - PRURITUS [None]
